FAERS Safety Report 5468098-X (Version None)
Quarter: 2007Q3

REPORT INFORMATION
  Report Type: 
  Country: None (occurrence: None)
  Receive Date: 20070921
  Receipt Date: 20070905
  Transmission Date: 20080115
  Serious: Yes (Hospitalization)
  Sender: FDA-Public Use
  Company Number: 2005RR-00731

PATIENT
  Age: 72 Year
  Sex: Female

DRUGS (8)
  1. CEFACLOR [Suspect]
     Indication: SKIN ULCER
     Dates: start: 20010828, end: 20010917
  2. CEFACLOR [Suspect]
     Indication: SKIN ULCER
     Dates: start: 20010918, end: 20011008
  3. CEFACLOR [Suspect]
     Indication: SKIN ULCER
     Dates: start: 20011204, end: 20011208
  4. CEFACLOR [Suspect]
     Indication: SKIN ULCER
     Dates: start: 20020108
  5. ERYTHROMYCIN ETHYLSUCCINATE [Concomitant]
  6. ERYTHROMYCIN ETHYLSUCCINATE [Concomitant]
  7. BACTRIM [Concomitant]
  8. MEROPENEM (MEROPENEM) [Concomitant]

REACTIONS (7)
  - ACUTE GENERALISED EXANTHEMATOUS PUSTULOSIS [None]
  - CULTURE URINE POSITIVE [None]
  - CYSTITIS HAEMORRHAGIC [None]
  - ENTEROBACTER INFECTION [None]
  - ESCHERICHIA INFECTION [None]
  - PATHOGEN RESISTANCE [None]
  - TYPE IV HYPERSENSITIVITY REACTION [None]
